FAERS Safety Report 4920048-8 (Version None)
Quarter: 2006Q1

REPORT INFORMATION
  Report Type: 
  Country: None (occurrence: None)
  Receive Date: 20060210
  Receipt Date: 20060210
  Transmission Date: 20060701
  Serious: Yes (Other)
  Sender: FDA-Public Use
  Company Number: 2006-00528

PATIENT
  Sex: Male

DRUGS (2)
  1. TRELSTAR DEPOT [Suspect]
  2. CASODEX [Suspect]

REACTIONS (2)
  - LIVER DISORDER [None]
  - PANCREATIC CARCINOMA METASTATIC [None]
